FAERS Safety Report 17571743 (Version 1)
Quarter: 2020Q1

REPORT INFORMATION
  Report Type: Spontaneous
  Country: US (occurrence: US)
  Receive Date: 20200323
  Receipt Date: 20200323
  Transmission Date: 20200409
  Serious: No
  Sender: FDA-Public Use
  Company Number: US-VERTEX PHARMACEUTICALS-2020-005816

PATIENT
  Age: 20 Year
  Sex: Female

DRUGS (2)
  1. DIFLUCAN [Concomitant]
     Active Substance: FLUCONAZOLE
  2. TRIKAFTA [Suspect]
     Active Substance: ELEXACAFTOR\IVACAFTOR\TEZACAFTOR
     Indication: CYSTIC FIBROSIS
     Dosage: ELEXACAFTOR 100 MG, TEZACAFTOR 50 MG, IVACAFTOR 75 MG AM; IVACAFTOR 150 MG PM
     Route: 048
     Dates: start: 20200308

REACTIONS (4)
  - Headache [Unknown]
  - Dizziness [Unknown]
  - Pruritus [Unknown]
  - Rash [Recovered/Resolved]

NARRATIVE: CASE EVENT DATE: 202003
